FAERS Safety Report 8341194-5 (Version None)
Quarter: 2012Q2

REPORT INFORMATION
  Report Type: 
  Country: None (occurrence: None)
  Receive Date: 20120507
  Receipt Date: 20120504
  Transmission Date: 20120825
  Serious: Yes (Death, Hospitalization, Other)
  Sender: FDA-Public Use
  Company Number: US-ABBOTT-12P-163-0932441-00

PATIENT
  Sex: Male
  Weight: 109.1 kg

DRUGS (7)
  1. VIOXX [Concomitant]
     Indication: PRODUCT USED FOR UNKNOWN INDICATION
     Dates: start: 20030901
  2. HYDROCODONE BITARTRATE + ACETAMINOPHEN [Concomitant]
     Indication: PRODUCT USED FOR UNKNOWN INDICATION
     Dates: start: 20031222, end: 20040113
  3. BTDS IN OA PAIN (CODE NOT BROKEN) [Suspect]
     Indication: PRODUCT USED FOR UNKNOWN INDICATION
     Route: 062
     Dates: start: 20040120, end: 20040125
  4. GLUCOSAMINE [Suspect]
     Indication: PRODUCT USED FOR UNKNOWN INDICATION
  5. VICODIN [Suspect]
     Indication: PAIN
     Route: 048
     Dates: start: 20040113, end: 20040120
  6. MULTI-VITAMINS [Concomitant]
     Indication: PRODUCT USED FOR UNKNOWN INDICATION
     Dates: start: 19990101
  7. ACETYLSALICYLIC ACID SRT [Concomitant]
     Indication: PRODUCT USED FOR UNKNOWN INDICATION
     Dates: start: 20011201

REACTIONS (2)
  - MENINGIOMA [None]
  - CREUTZFELDT-JAKOB DISEASE [None]
